FAERS Safety Report 15709561 (Version 1)
Quarter: 2018Q4

REPORT INFORMATION
  Report Type: Spontaneous
  Country: US (occurrence: US)
  Receive Date: 20181211
  Receipt Date: 20181211
  Transmission Date: 20190205
  Serious: No
  Sender: FDA-Public Use
  Company Number: US-BAYER-2018-216253

PATIENT
  Age: 24 Year
  Sex: Female

DRUGS (2)
  1. CLARITIN [Suspect]
     Active Substance: LORATADINE
     Route: 065
  2. HUMIRA [Suspect]
     Active Substance: ADALIMUMAB
     Indication: ANKYLOSING SPONDYLITIS
     Dosage: 40 MG, UNK
     Route: 058
     Dates: start: 20181016

REACTIONS (4)
  - Productive cough [Not Recovered/Not Resolved]
  - Rash papular [None]
  - Rash pruritic [None]
  - Rash erythematous [None]

NARRATIVE: CASE EVENT DATE: 20181016
